FAERS Safety Report 5987062-5 (Version None)
Quarter: 2008Q4

REPORT INFORMATION
  Report Type: 
  Country: None (occurrence: None)
  Receive Date: 20081209
  Receipt Date: 20071120
  Transmission Date: 20090506
  Serious: No
  Sender: FDA-Public Use
  Company Number: A0696159A

PATIENT
  Age: 36 Year
  Sex: Female

DRUGS (1)
  1. AVANDAMET [Suspect]
     Route: 048
     Dates: start: 20030101

REACTIONS (5)
  - ADVERSE EVENT [None]
  - ARTHRALGIA [None]
  - JOINT SWELLING [None]
  - PERIARTHRITIS [None]
  - WEIGHT INCREASED [None]
